FAERS Safety Report 9176876 (Version 1)
Quarter: 2013Q1

REPORT INFORMATION
  Report Type: Spontaneous
  Country: CA (occurrence: CA)
  Receive Date: 20130321
  Receipt Date: 20130321
  Transmission Date: 20140127
  Serious: Yes (Other)
  Sender: FDA-Public Use
  Company Number: PHHY2013CA026821

PATIENT
  Sex: Female

DRUGS (1)
  1. FEMARA [Suspect]
     Indication: BREAST CANCER
     Dosage: UNK UKN, UNK

REACTIONS (5)
  - Hepatic cancer [Unknown]
  - Second primary malignancy [Unknown]
  - Night sweats [Unknown]
  - Weight increased [Unknown]
  - Blood cholesterol increased [Unknown]
